FAERS Safety Report 16064811 (Version 1)
Quarter: 2019Q1

REPORT INFORMATION
  Report Type: Report from Study
  Country: FR (occurrence: FR)
  Receive Date: 20190312
  Receipt Date: 20190312
  Transmission Date: 20190418
  Serious: Yes (Other)
  Sender: FDA-Public Use
  Company Number: FR-MYLANLABS-2019M1015449

PATIENT
  Age: 36 Year
  Sex: Female
  Weight: 82 kg

DRUGS (4)
  1. SIMPONI [Suspect]
     Active Substance: GOLIMUMAB
     Indication: ANKYLOSING SPONDYLITIS
     Dosage: 50 MILLIGRAM, MONTHLY
     Route: 058
     Dates: start: 20150717, end: 20170117
  2. METFORMIN [Suspect]
     Active Substance: METFORMIN HYDROCHLORIDE
     Indication: TYPE 2 DIABETES MELLITUS
     Dosage: 1 GRAM
     Route: 048
     Dates: start: 201701
  3. DOLIPRANE [Suspect]
     Active Substance: ACETAMINOPHEN
     Indication: ANALGESIC THERAPY
     Dosage: 1000 MILLIGRAM, DOSAGE FORM: UNSPECIFIED, FOR MORE THAN 5 YEARS
     Route: 065
  4. OPTIMIZETTE [Concomitant]
     Active Substance: DESOGESTREL
     Indication: CONTRACEPTION
     Dosage: 1 GRAM
     Route: 065
     Dates: start: 201601

REACTIONS (3)
  - Hepatic steatosis [Unknown]
  - Cholestasis [Unknown]
  - Hepatocellular injury [Unknown]

NARRATIVE: CASE EVENT DATE: 201701
